FAERS Safety Report 25940821 (Version 1)
Quarter: 2025Q4

REPORT INFORMATION
  Report Type: Spontaneous
  Country: US (occurrence: None)
  Receive Date: 20251018
  Receipt Date: 20251018
  Transmission Date: 20260118
  Serious: No
  Sender: FDA-CTU
  Company Number: None

PATIENT
  Age: 48 Year
  Sex: Female
  Weight: 72 kg

DRUGS (2)
  1. CYTARABINE [Suspect]
     Active Substance: CYTARABINE
     Dates: end: 20250924
  2. DAUNORUBICIN [Suspect]
     Active Substance: DAUNORUBICIN
     Dates: end: 20250920

REACTIONS (2)
  - Acute respiratory failure [None]
  - Pneumonia [None]

NARRATIVE: CASE EVENT DATE: 20251014
